FAERS Safety Report 7182971-6 (Version None)
Quarter: 2010Q4

REPORT INFORMATION
  Report Type: 
  Country: None (occurrence: None)
  Receive Date: 20101210
  Receipt Date: 20101123
  Transmission Date: 20110411
  Serious: No
  Sender: FDA-Public Use
  Company Number: 2010-01011

PATIENT
  Sex: Female

DRUGS (3)
  1. ZICAM COLD REMEDY NASAL GEL [Suspect]
     Indication: NASOPHARYNGITIS
     Dosage: AS DIRECTED;
     Dates: start: 20070316, end: 20070101
  2. ... [Concomitant]
  3. ... [Concomitant]

REACTIONS (4)
  - AGEUSIA [None]
  - ANOSMIA [None]
  - NASAL DISCOMFORT [None]
  - THROAT IRRITATION [None]
